FAERS Safety Report 10610689 (Version 7)
Quarter: 2015Q2

REPORT INFORMATION
  Report Type: Spontaneous
  Country: US (occurrence: None)
  Receive Date: 20141124
  Receipt Date: 20150629
  Transmission Date: 20150821
  Serious: Yes (Hospitalization, Other)
  Sender: FDA-Public Use
  Company Number: ADR-2014-00902

PATIENT
  Age: 73 Year
  Sex: Male

DRUGS (9)
  1. LIORESAL [Suspect]
     Active Substance: BACLOFEN
     Indication: MUSCLE SPASTICITY
  2. NORVASC [Suspect]
     Active Substance: AMLODIPINE BESYLATE
  3. PROZAC [Suspect]
     Active Substance: FLUOXETINE HYDROCHLORIDE
  4. TOVIAZ [Suspect]
     Active Substance: FESOTERODINE FUMARATE
  5. BACLOFEN ORAL [Suspect]
     Active Substance: BACLOFEN
  6. DIAZEPAM. [Suspect]
     Active Substance: DIAZEPAM
     Dosage: 5 MG AS NEEDED 1-3 TIMES PER DAY
  7. PHENYTOIN. [Suspect]
     Active Substance: PHENYTOIN
  8. MACROBID [Suspect]
     Active Substance: NITROFURANTOIN\NITROFURANTOIN MONOHYDRATE
  9. COREG [Suspect]
     Active Substance: CARVEDILOL

REACTIONS (16)
  - Device infusion issue [None]
  - Device related infection [None]
  - Condition aggravated [None]
  - Pocket erosion [None]
  - Drug withdrawal syndrome [None]
  - Implant site infection [None]
  - Device extrusion [None]
  - Incorrect dose administered by device [None]
  - Medical device site discharge [None]
  - Asthenia [None]
  - Wound dehiscence [None]
  - Gait disturbance [None]
  - Device issue [None]
  - Weight bearing difficulty [None]
  - Device battery issue [None]
  - Muscle tightness [None]

NARRATIVE: CASE EVENT DATE: 20140521
